FAERS Safety Report 22702950 (Version 4)
Quarter: 2023Q4

REPORT INFORMATION
  Report Type: Report from Study
  Country: US (occurrence: US)
  Receive Date: 20230713
  Receipt Date: 20231117
  Transmission Date: 20240109
  Serious: Yes (Hospitalization)
  Sender: FDA-Public Use
  Company Number: US-PFIZER INC-PV202300117799

PATIENT
  Age: 65 Year
  Sex: Male
  Weight: 108.9 kg

DRUGS (2)
  1. MEKTOVI [Suspect]
     Active Substance: BINIMETINIB
     Indication: Malignant melanoma
     Dosage: 45 MG, 2X/DAY (BID)
     Route: 048
     Dates: start: 20221212, end: 20230710
  2. PF-07284890 [Suspect]
     Active Substance: PF-07284890
     Indication: Malignant melanoma
     Dosage: 300 MG, 2X/DAY (BID)
     Route: 048
     Dates: start: 20221212

REACTIONS (1)
  - Embolism [Recovered/Resolved with Sequelae]

NARRATIVE: CASE EVENT DATE: 20230703
